FAERS Safety Report 24072227 (Version 1)
Quarter: 2024Q3

REPORT INFORMATION
  Report Type: Spontaneous
  Country: GB (occurrence: GB)
  Receive Date: 20240710
  Receipt Date: 20240710
  Transmission Date: 20241016
  Serious: Yes (Other)
  Sender: AUROBINDO
  Company Number: GB-MHRA-TPP48061160C4351419YC1719918006455

PATIENT
  Age: 38 Year
  Sex: Male
  Weight: 68 kg

DRUGS (9)
  1. MONTELUKAST [Suspect]
     Active Substance: MONTELUKAST SODIUM
     Indication: Ill-defined disorder
     Dosage: UNK
     Route: 065
     Dates: start: 20240702
  2. AMOXICILLIN [Concomitant]
     Active Substance: AMOXICILLIN
     Indication: Ill-defined disorder
     Dosage: UNK, TAKE ONE 3 TIMES/DAY FOR 5 DAYS
     Route: 065
     Dates: start: 20240502, end: 20240507
  3. AMITRIPTYLINE HYDROCHLORIDE [Concomitant]
     Active Substance: AMITRIPTYLINE HYDROCHLORIDE
     Indication: Ill-defined disorder
     Dosage: UNK, NOTCE
     Route: 065
     Dates: start: 20230213, end: 20240702
  4. BUDESONIDE [Concomitant]
     Active Substance: BUDESONIDE
     Indication: Ill-defined disorder
     Dosage: UNK, USE 1 VIAL MIXED WITH NEILMED SINUS RINSE DAILY
     Route: 065
     Dates: start: 20240403, end: 20240513
  5. BECLOMETHASONE\FORMOTEROL [Concomitant]
     Active Substance: BECLOMETHASONE\FORMOTEROL
     Indication: Ill-defined disorder
     Dosage: UNK, 2 PUFFS TWICE A DAY. USE WITH SPACER.
     Route: 065
     Dates: start: 20230802
  6. MONTELUKAST [Concomitant]
     Active Substance: MONTELUKAST SODIUM
     Indication: Ill-defined disorder
     Dosage: UNK, ONE TO BE TAKEN AT NIGHT
     Route: 065
     Dates: start: 20240213
  7. METFORMIN [Concomitant]
     Active Substance: METFORMIN HYDROCHLORIDE
     Indication: Ill-defined disorder
     Dosage: UNK, 1 TO BE TAKEN TWICE DAILY
     Route: 065
     Dates: start: 20220704
  8. PREDNISOLONE [Concomitant]
     Active Substance: PREDNISOLONE
     Indication: Ill-defined disorder
     Dosage: 8 DOSAGE FORM, DAILY, FOR 5 DAYS FOR ASTHMA EXAC
     Route: 065
     Dates: start: 20240502, end: 20240507
  9. ALBUTEROL [Concomitant]
     Active Substance: ALBUTEROL
     Indication: Ill-defined disorder
     Dosage: UNK, INHALE 2 DOSES AS NEEDED
     Dates: start: 20231227

REACTIONS (2)
  - Anxiety [Unknown]
  - Suicidal ideation [Unknown]

NARRATIVE: CASE EVENT DATE: 20240702
